FAERS Safety Report 4346849-5 (Version None)
Quarter: 2004Q1

REPORT INFORMATION
  Report Type: 
  Country: None (occurrence: None)
  Receive Date: 20040329
  Receipt Date: 20031210
  Transmission Date: 20041129
  Serious: No
  Sender: FDA-Public Use
  Company Number: USA031254429

PATIENT
  Age: 59 Year
  Sex: Female
  Weight: 64 kg

DRUGS (6)
  1. STRATTERA [Suspect]
     Indication: ATTENTION DEFICIT/HYPERACTIVITY DISORDER
     Dosage: 60 MG/DAY
     Dates: start: 20031206
  2. LAMICTAL [Concomitant]
  3. WELLBUTRIN [Concomitant]
  4. PREMARIN [Concomitant]
  5. NORVASC [Concomitant]
  6. PRILOSEC [Concomitant]

REACTIONS (4)
  - DIZZINESS [None]
  - HYPOAESTHESIA [None]
  - LACRIMATION INCREASED [None]
  - SINUS DISORDER [None]
